FAERS Safety Report 7812461-6 (Version None)
Quarter: 2011Q4

REPORT INFORMATION
  Report Type: 
  Country: None (occurrence: None)
  Receive Date: 20111013
  Receipt Date: 20111010
  Transmission Date: 20120403
  Serious: Yes (Disabling)
  Sender: FDA-Public Use
  Company Number: GB-MERCK-1110GBR00034

PATIENT
  Age: 77 Year
  Sex: Male
  Weight: 81 kg

DRUGS (8)
  1. METFORMIN [Concomitant]
     Route: 065
     Dates: start: 20110803
  2. ATORVASTATIN [Concomitant]
     Route: 065
     Dates: start: 20110803
  3. ALUMINUM HYDROXIDE AND MAGNESIUM TRISILICATE [Concomitant]
     Route: 065
     Dates: start: 20110907
  4. ACETAMINOPHEN AND CODEINE PHOSPHATE [Concomitant]
     Route: 065
     Dates: start: 20110803
  5. GLICLAZIDE [Concomitant]
     Route: 065
     Dates: start: 20110601
  6. JANUVIA [Suspect]
     Route: 048
  7. BENDROFLUMETHIAZIDE [Concomitant]
     Route: 065
     Dates: start: 20110601
  8. PERINDOPRIL [Concomitant]
     Route: 065
     Dates: start: 20110601

REACTIONS (1)
  - BACK PAIN [None]
